FAERS Safety Report 19240582 (Version 1)
Quarter: 2021Q2

REPORT INFORMATION
  Report Type: Spontaneous
  Country: US (occurrence: US)
  Receive Date: 20210511
  Receipt Date: 20210511
  Transmission Date: 20210717
  Serious: No
  Sender: FDA-Public Use
  Company Number: US-SA-2021SA146807

PATIENT
  Sex: Male

DRUGS (2)
  1. DUPIXENT [Suspect]
     Active Substance: DUPILUMAB
     Dosage: 300 MG, QOW
     Route: 058
     Dates: start: 2021
  2. DUPIXENT [Suspect]
     Active Substance: DUPILUMAB
     Dosage: 600 MG, 1 X TOTAL
     Route: 058
     Dates: start: 20210429

REACTIONS (3)
  - Condition aggravated [Unknown]
  - Adverse reaction [Unknown]
  - Fungal skin infection [Unknown]

NARRATIVE: CASE EVENT DATE: 202104
